FAERS Safety Report 8887411 (Version 1)
Quarter: 2012Q4

REPORT INFORMATION
  Report Type: Spontaneous
  Country: US (occurrence: None)
  Receive Date: 20121101
  Receipt Date: 20121101
  Transmission Date: 20130627
  Serious: Yes (Hospitalization)
  Sender: FDA-Public Use
  Company Number: None

PATIENT
  Age: 66 Year
  Sex: Female
  Weight: 87.6 kg

DRUGS (20)
  1. LISINOPRIL [Suspect]
     Indication: HYPERTENSION
     Dosage: 10MG DAILY PO
CHRONIC
     Route: 048
  2. SPIRIVA [Concomitant]
  3. ADVAIR [Concomitant]
  4. FERROUS SULFATE [Concomitant]
  5. KLOR CON M [Concomitant]
  6. FLONASE [Concomitant]
  7. SIMVASTATIN [Concomitant]
  8. METOPROLOL [Concomitant]
  9. VERAPAMIL ER [Concomitant]
  10. MAXIDE [Concomitant]
  11. VENTOLIN [Concomitant]
  12. AMLODIPINE [Concomitant]
  13. DUONEB [Concomitant]
  14. CLARITIN [Concomitant]
  15. OMEPRAZOLE [Concomitant]
  16. CELEXA [Concomitant]
  17. METFORM [Concomitant]
  18. FLOVENT [Concomitant]
  19. BENADRYL [Concomitant]
  20. FLOVENT [Concomitant]

REACTIONS (2)
  - Angioedema [None]
  - Intracranial aneurysm [None]
